FAERS Safety Report 12809859 (Version 1)
Quarter: 2016Q4

REPORT INFORMATION
  Report Type: Spontaneous
  Country: US (occurrence: US)
  Receive Date: 20161004
  Receipt Date: 20161004
  Transmission Date: 20170207
  Serious: Yes (Death)
  Sender: FDA-Public Use
  Company Number: None

PATIENT
  Age: 84 Year
  Sex: Female
  Weight: 49.5 kg

DRUGS (6)
  1. HYOSCYAMINE VIRTUS PHARMACEUTICALS/PHARMA TEC [Suspect]
     Active Substance: HYOSCYAMINE
     Indication: WOUND SECRETION
     Dosage: ?          QUANTITY:1 TABLET(S);?
     Route: 060
     Dates: start: 20160916, end: 20160919
  2. RESTASIS [Concomitant]
     Active Substance: CYCLOSPORINE
  3. VITAMIN D [Concomitant]
     Active Substance: CHOLECALCIFEROL
  4. QUETIAPINE. [Concomitant]
     Active Substance: QUETIAPINE
  5. LEVOTHYROXIN [Concomitant]
     Active Substance: LEVOTHYROXINE
  6. PREDNISONE. [Concomitant]
     Active Substance: PREDNISONE

REACTIONS (1)
  - Death [None]

NARRATIVE: CASE EVENT DATE: 20160916
